FAERS Safety Report 5983511-7 (Version None)
Quarter: 2008Q4

REPORT INFORMATION
  Report Type: 
  Country: None (occurrence: None)
  Receive Date: 20081205
  Receipt Date: 20081205
  Transmission Date: 20090506
  Serious: Yes (Hospitalization)
  Sender: FDA-Public Use
  Company Number: None

PATIENT
  Age: 55 Year
  Sex: Female

DRUGS (2)
  1. 5-AZACYTIDINE [Suspect]
  2. ERLOTINIB [Suspect]

REACTIONS (1)
  - INTESTINAL OBSTRUCTION [None]
